FAERS Safety Report 8519287 (Version 2)
Quarter: 2012Q4

REPORT INFORMATION
  Report Type: Report from Study
  Country: US (occurrence: US)
  Receive Date: 20120418
  Receipt Date: 20120924
  Transmission Date: 20130627
  Serious: Yes (Hospitalization)
  Sender: FDA-Public Use
  Company Number: PHHO2012US001756

PATIENT
  Age: 47 Year
  Sex: Female
  Weight: 109.76 kg

DRUGS (5)
  1. PLACEBO [Suspect]
     Indication: CARDIAC FAILURE ACUTE
     Dosage: UNK
     Route: 048
     Dates: start: 20110107, end: 20110128
  2. SPIRONOLACTONE [Suspect]
     Indication: CARDIAC FAILURE CHRONIC
     Dosage: 25 mg, UNK
     Dates: start: 20110105
  3. METOPROLOL [Suspect]
     Indication: HYPERTENSION
     Dosage: 25 mg, BID
     Dates: start: 20020805
  4. DIOVAN [Suspect]
     Indication: HYPERTENSION
     Dosage: 160 mg, UNK
  5. FUROSEMIDE [Concomitant]

REACTIONS (2)
  - Cardiac failure [Recovered/Resolved]
  - Drug ineffective [None]
